FAERS Safety Report 7006404-5 (Version None)
Quarter: 2010Q3

REPORT INFORMATION
  Report Type: 
  Country: None (occurrence: None)
  Receive Date: 20100909
  Receipt Date: 20100831
  Transmission Date: 20110219
  Serious: Yes (Other)
  Sender: FDA-Public Use
  Company Number: 2010SP046962

PATIENT
  Age: 9 Year
  Sex: Male
  Weight: 71 kg

DRUGS (3)
  1. DIPROGENTA (BETAMETHASONE DIPROPIONATE/GENTAMICIN SULFATE /00619001/) [Suspect]
     Indication: EAR PAIN
     Dates: end: 20100730
  2. DIPROGENTA (BETAMETHASONE DIPROPIONATE/GENTAMICIN SULFATE /00619001/) [Suspect]
     Indication: EAR PAIN
     Dates: start: 20100718
  3. DICORTINEFF (FLUDRONEF) [Suspect]
     Indication: EAR PAIN
     Dates: start: 20100718

REACTIONS (2)
  - HYPOACUSIS [None]
  - OFF LABEL USE [None]
